FAERS Safety Report 5758769-X (Version None)
Quarter: 2008Q2

REPORT INFORMATION
  Report Type: 
  Country: None (occurrence: None)
  Receive Date: 20080507
  Receipt Date: 20070425
  Transmission Date: 20081010
  Serious: Yes (Other)
  Sender: FDA-Public Use
  Company Number: 233350K07USA

PATIENT
  Age: 51 Year
  Sex: Male

DRUGS (6)
  1. REBIF [Suspect]
     Indication: MULTIPLE SCLEROSIS
     Dosage: 44 MCG, 3 IN 1 WEEKS, SUBCUTANEOUS
     Route: 058
     Dates: start: 20030618, end: 20060828
  2. LOPRESSOR [Concomitant]
  3. NEURONTIN [Concomitant]
  4. LYRICA [Concomitant]
  5. ULTRAM [Concomitant]
  6. TYLENOL (COTYLENOL) [Concomitant]

REACTIONS (1)
  - HEPATIC ENZYME INCREASED [None]
